FAERS Safety Report 20852060 (Version 1)
Quarter: 2022Q2

REPORT INFORMATION
  Report Type: Spontaneous
  Country: US (occurrence: US)
  Receive Date: 20220520
  Receipt Date: 20220520
  Transmission Date: 20220721
  Serious: Yes (Other)
  Sender: FDA-Public Use
  Company Number: US-BRISTOL-MYERS SQUIBB COMPANY-2022-041308

PATIENT
  Age: 66 Year
  Sex: Male
  Weight: 94.8 kg

DRUGS (29)
  1. ELIQUIS [Suspect]
     Active Substance: APIXABAN
     Indication: Cerebrovascular accident prophylaxis
     Route: 065
  2. FIRDAPSE [Suspect]
     Active Substance: AMIFAMPRIDINE PHOSPHATE
     Indication: Myasthenic syndrome
     Route: 048
     Dates: start: 202103, end: 2021
  3. FIRDAPSE [Suspect]
     Active Substance: AMIFAMPRIDINE PHOSPHATE
     Route: 048
     Dates: start: 2021, end: 20210424
  4. FIRDAPSE [Suspect]
     Active Substance: AMIFAMPRIDINE PHOSPHATE
     Route: 048
     Dates: start: 20210506
  5. FIRDAPSE [Suspect]
     Active Substance: AMIFAMPRIDINE PHOSPHATE
     Dosage: 1.5 TABLETS
     Route: 048
  6. FIRDAPSE [Suspect]
     Active Substance: AMIFAMPRIDINE PHOSPHATE
     Route: 048
  7. FIRDAPSE [Suspect]
     Active Substance: AMIFAMPRIDINE PHOSPHATE
     Route: 048
  8. LASIX [Concomitant]
     Active Substance: FUROSEMIDE
  9. METOPROLOL TARTRATE [Concomitant]
     Active Substance: METOPROLOL TARTRATE
  10. COLCHICINE [Concomitant]
     Active Substance: COLCHICINE
     Indication: Gout
  11. SPIRONOLACTONE [Concomitant]
     Active Substance: SPIRONOLACTONE
  12. VALSARTAN [Concomitant]
     Active Substance: VALSARTAN
  13. VALSARTAN [Concomitant]
     Active Substance: VALSARTAN
  14. FLUCONAZOLE [Concomitant]
     Active Substance: FLUCONAZOLE
     Dosage: TWICE IN EACH NOSTRIL ONCE DAILY
  15. PANTOPRAZOLE SODIUM [Concomitant]
     Active Substance: PANTOPRAZOLE SODIUM
  16. VITAMIN D3 [Concomitant]
     Active Substance: CHOLECALCIFEROL
     Dosage: 50000 IU
  17. HYOSCYAMINE [Concomitant]
     Active Substance: HYOSCYAMINE
     Dosage: AS NEEDED
     Route: 060
  18. LEVOCETIRIZINE [Concomitant]
     Active Substance: LEVOCETIRIZINE
     Dosage: 1/2 TABLET PER DAY
  19. LEVOCETIRIZINE [Concomitant]
     Active Substance: LEVOCETIRIZINE
  20. ALBUTEROL [Concomitant]
     Active Substance: ALBUTEROL
     Dosage: 6.3/3 MG PER MILLILITRE
  21. PREDNISONE [Concomitant]
     Active Substance: PREDNISONE
     Dosage: AS NEEDED
  22. FENTANYL [Concomitant]
     Active Substance: FENTANYL
  23. TYLENOL [Concomitant]
     Active Substance: ACETAMINOPHEN
     Indication: Pain
     Dosage: AS NEEDED
  24. DEXAMETHASONE [Concomitant]
     Active Substance: DEXAMETHASONE
     Dosage: DAILY AS NEEDED
  25. CYCLOBENZAPRINE [Concomitant]
     Active Substance: CYCLOBENZAPRINE
  26. PERCOCET [Concomitant]
     Active Substance: ACETAMINOPHEN\OXYCODONE HYDROCHLORIDE
     Dosage: 5/325 MG
  27. ADVIL [Concomitant]
     Active Substance: IBUPROFEN
  28. FLONASE [Concomitant]
     Active Substance: FLUTICASONE PROPIONATE
  29. IBUPROFEN [Concomitant]
     Active Substance: IBUPROFEN
     Dosage: AS NEEDED

REACTIONS (17)
  - Pharyngeal swelling [Not Recovered/Not Resolved]
  - Rectal haemorrhage [Not Recovered/Not Resolved]
  - Feeling hot [Not Recovered/Not Resolved]
  - Crying [Not Recovered/Not Resolved]
  - Energy increased [Unknown]
  - Inappropriate schedule of product administration [Unknown]
  - Respiration abnormal [Recovered/Resolved]
  - Feeling abnormal [Unknown]
  - Myalgia [Not Recovered/Not Resolved]
  - Restlessness [Not Recovered/Not Resolved]
  - Product dose omission issue [Unknown]
  - Oesophageal disorder [Unknown]
  - Haemorrhoids [Not Recovered/Not Resolved]
  - Dysphagia [Not Recovered/Not Resolved]
  - Paraesthesia [Not Recovered/Not Resolved]
  - Pain in extremity [Not Recovered/Not Resolved]
  - Muscle spasms [Not Recovered/Not Resolved]

NARRATIVE: CASE EVENT DATE: 20210101
